FAERS Safety Report 10556780 (Version 1)
Quarter: 2014Q4

REPORT INFORMATION
  Report Type: Spontaneous
  Country: AU (occurrence: AU)
  Receive Date: 20141031
  Receipt Date: 20141031
  Transmission Date: 20150529
  Serious: Yes (Other)
  Sender: FDA-Public Use
  Company Number: AU-SA-2014SA144320

PATIENT
  Sex: Female

DRUGS (6)
  1. NOTEN [Concomitant]
     Active Substance: ATENOLOL
  2. KARVEA [Suspect]
     Active Substance: IRBESARTAN
     Route: 048
     Dates: start: 2005
  3. ASPIRIN. [Concomitant]
     Active Substance: ASPIRIN
  4. ALL OTHER THERAPEUTIC PRODUCTS [Suspect]
     Active Substance: UNSPECIFIED INGREDIENT
     Route: 065
  5. KARVEA [Suspect]
     Active Substance: IRBESARTAN
     Route: 048
  6. KARVEZIDE [Suspect]
     Active Substance: HYDROCHLOROTHIAZIDE\IRBESARTAN
     Route: 065
     Dates: start: 2009, end: 2013

REACTIONS (3)
  - Nausea [Unknown]
  - Dysgeusia [Unknown]
  - Loss of consciousness [Unknown]
